FAERS Safety Report 10094340 (Version 3)
Quarter: 2014Q3

REPORT INFORMATION
  Report Type: Spontaneous
  Country: US (occurrence: US)
  Receive Date: 20140422
  Receipt Date: 20140808
  Transmission Date: 20150326
  Serious: No
  Sender: FDA-Public Use
  Company Number: US-BRISTOL-MYERS SQUIBB COMPANY-19964170

PATIENT
  Age: 32 Year
  Sex: Female
  Weight: 126.5 kg

DRUGS (6)
  1. PRENATAL VITAMIN [Suspect]
     Active Substance: VITAMINS
     Dosage: 1DF- 1 TABLET
     Route: 048
  2. TYLENOL [Suspect]
     Active Substance: ACETAMINOPHEN
     Indication: PREMEDICATION
     Dosage: AS DIRECTED
     Route: 048
  3. HYDREA [Suspect]
     Active Substance: HYDROXYUREA
     Route: 048
  4. SPRYCEL [Suspect]
     Active Substance: DASATINIB
     Indication: CHRONIC MYELOID LEUKAEMIA
     Dosage: AGAIN STARTED ON JUL2013
     Route: 048
     Dates: start: 201211, end: 201308
  5. ZINC SULFATE [Suspect]
     Active Substance: ZINC SULFATE\ZINC SULFATE ANHYDROUS
     Indication: NUTRITIONAL SUPPLEMENTATION
     Route: 048
  6. ASPIRIN. [Suspect]
     Active Substance: ASPIRIN
     Indication: PROPHYLAXIS
     Route: 048

REACTIONS (2)
  - Normal newborn [Unknown]
  - Pregnancy [Recovered/Resolved]

NARRATIVE: CASE EVENT DATE: 201307
